FAERS Safety Report 22208885 (Version 2)
Quarter: 2023Q2

REPORT INFORMATION
  Report Type: Report from Study
  Country: US (occurrence: US)
  Receive Date: 20230413
  Receipt Date: 20230630
  Transmission Date: 20230721
  Serious: Yes (Hospitalization, Other)
  Sender: FDA-Public Use
  Company Number: US-JAZZ-2023-US-007930

PATIENT
  Age: 12 Year
  Sex: Male

DRUGS (2)
  1. EPIDIOLEX [Suspect]
     Active Substance: CANNABIDIOL
     Indication: Lennox-Gastaut syndrome
     Dosage: 4.2ML
     Route: 048
     Dates: start: 20221104
  2. KETAMINE [Suspect]
     Active Substance: KETAMINE
     Indication: Product used for unknown indication

REACTIONS (7)
  - Seizure [Recovering/Resolving]
  - Condition aggravated [Unknown]
  - Poverty of speech [Unknown]
  - Gait disturbance [Unknown]
  - Decreased appetite [Unknown]
  - Drug hypersensitivity [Unknown]
  - Injury [Unknown]

NARRATIVE: CASE EVENT DATE: 20230217
